FAERS Safety Report 4355180-3 (Version None)
Quarter: 2004Q2

REPORT INFORMATION
  Report Type: 
  Country: None (occurrence: None)
  Receive Date: 20040504
  Receipt Date: 20040419
  Transmission Date: 20050107
  Serious: Yes (Other)
  Sender: FDA-Public Use
  Company Number: B0330533A

PATIENT
  Age: 3 Year
  Sex: Male

DRUGS (3)
  1. BUSULPHAN (FORMULATION UNKNOWN) (GENERIC) [Suspect]
     Indication: BONE MARROW TRANSPLANT
     Dosage: SEE DOSAGE TEXT ORAL
     Route: 048
  2. ALKERAN [Suspect]
     Indication: BONE MARROW TRANSPLANT
     Dosage: SEE DOSAGE TEXT  INTRAVENOUS
     Route: 042
  3. TOPOTECAN HYDROCHLORIDE (FORMULATION UNKNOWN) (GENERIC) (TOPOTECAN) [Suspect]
     Indication: BONE MARROW TRANSPLANT
     Dosage: SEE DOSAGE TEXT    INTRAVENOUS
     Route: 042

REACTIONS (5)
  - BONE MARROW DEPRESSION [None]
  - DRUG TOXICITY [None]
  - FEBRILE NEUTROPENIA [None]
  - MUCOSAL INFLAMMATION [None]
  - PAIN [None]
